FAERS Safety Report 9706857 (Version 1)
Quarter: 2013Q4

REPORT INFORMATION
  Report Type: Spontaneous
  Country: US (occurrence: US)
  Receive Date: 20131125
  Receipt Date: 20131125
  Transmission Date: 20140711
  Serious: No
  Sender: FDA-Public Use
  Company Number: US-TEVA-444780USA

PATIENT
  Sex: Female
  Weight: 63.11 kg

DRUGS (3)
  1. QNASL [Suspect]
     Indication: HYPERSENSITIVITY
     Route: 045
  2. HYDROXYZINE [Concomitant]
     Indication: URTICARIA
  3. LOW DOSE CHOLESTEROL MEDICATION [Concomitant]

REACTIONS (2)
  - Burning sensation [Not Recovered/Not Resolved]
  - Pain [Not Recovered/Not Resolved]
